FAERS Safety Report 8015965-9 (Version None)
Quarter: 2011Q4

REPORT INFORMATION
  Report Type: 
  Country: None (occurrence: None)
  Receive Date: 20111230
  Receipt Date: 20111219
  Transmission Date: 20120403
  Serious: Yes (Other)
  Sender: FDA-Public Use
  Company Number: CA-JNJFOC-20111210499

PATIENT
  Sex: Male
  Weight: 70 kg

DRUGS (3)
  1. FLAGYL [Concomitant]
     Dosage: 2 TABLETS OF 250 MG, THRICE A DAY FOR 3 WEEKS ON
     Route: 048
  2. IMURAN [Concomitant]
     Indication: PROPHYLAXIS
     Route: 048
  3. REMICADE [Suspect]
     Indication: CROHN'S DISEASE
     Route: 042
     Dates: start: 20060921

REACTIONS (2)
  - FISTULA [None]
  - RECTAL ABSCESS [None]
